FAERS Safety Report 8809331 (Version 1)
Quarter: 2012Q4

REPORT INFORMATION
  Report Type: 
  Country: US (occurrence: US)
  Receive Date: 20120926
  Receipt Date: 20120926
  Transmission Date: 20130627
  Serious: No
  Sender: FDA-Public Use
  Company Number: US-PFIZER INC-2012237604

PATIENT
  Age: 53 Year
  Sex: Male

DRUGS (1)
  1. ADVIL PM [Suspect]
     Indication: INSOMNIA
     Dosage: UNK, approximately 4 times per week

REACTIONS (2)
  - Abdominal pain upper [Unknown]
  - Flatulence [Unknown]
